FAERS Safety Report 10754361 (Version 12)
Quarter: 2015Q4

REPORT INFORMATION
  Report Type: Report from Study
  Country: CA (occurrence: CA)
  Receive Date: 20150202
  Receipt Date: 20151118
  Transmission Date: 20160304
  Serious: Yes (Other)
  Sender: FDA-Public Use
  Company Number: CA-ALEXION PHARMACEUTICALS INC-A201404858

PATIENT
  Age: 44 Year
  Sex: Female
  Weight: 70.3 kg

DRUGS (23)
  1. SOLIRIS [Suspect]
     Active Substance: ECULIZUMAB
     Dosage: 900 MG, Q12D
     Route: 042
     Dates: start: 20120402
  2. TYLENOL [Concomitant]
     Active Substance: ACETAMINOPHEN
     Indication: HEADACHE
  3. SOLIRIS [Suspect]
     Active Substance: ECULIZUMAB
     Dosage: 900 MG, Q12D
     Route: 042
     Dates: start: 20120402
  4. TYLENOL [Concomitant]
     Active Substance: ACETAMINOPHEN
     Indication: NASOPHARYNGITIS
  5. CIPROFLOXACIN. [Concomitant]
     Active Substance: CIPROFLOXACIN
     Indication: PROPHYLAXIS
     Dosage: 250 MG, BID FOR 7 DAYS
     Route: 048
     Dates: start: 20141216
  6. SOLIRIS [Suspect]
     Active Substance: ECULIZUMAB
     Dosage: 900 MG, Q2W
     Route: 042
     Dates: start: 20111228, end: 20120322
  7. CEFADROXIL. [Concomitant]
     Active Substance: CEFADROXIL
     Indication: PROPHYLAXIS
     Dosage: 500 MG, BID (2 CAPSULES)
     Route: 048
     Dates: start: 20120908, end: 20120915
  8. TYLENOL [Concomitant]
     Active Substance: ACETAMINOPHEN
     Indication: PREMEDICATION
     Dosage: UNK, PRN
     Route: 065
     Dates: start: 201108
  9. BENADRYL [Concomitant]
     Active Substance: DIPHENHYDRAMINE HYDROCHLORIDE
     Indication: PREMEDICATION
     Dosage: UNK, PRN
     Route: 065
     Dates: start: 201108
  10. BACTROBAN [Concomitant]
     Active Substance: MUPIROCIN\MUPIROCIN CALCIUM
     Indication: WOUND
     Dosage: UNK
     Route: 061
     Dates: start: 20121018, end: 2012
  11. NAPROXEN. [Concomitant]
     Active Substance: NAPROXEN
     Indication: NEPHROLITHIASIS
     Dosage: UNK
     Route: 048
  12. SOLIRIS [Suspect]
     Active Substance: ECULIZUMAB
     Indication: PAROXYSMAL NOCTURNAL HAEMOGLOBINURIA
     Dosage: 600 MG, QW
     Route: 042
     Dates: start: 20111115, end: 20111208
  13. CEFADROXIL. [Concomitant]
     Active Substance: CEFADROXIL
     Indication: SUBCUTANEOUS ABSCESS
     Dosage: 500 MG, BID (2 CAPSULES)
     Route: 048
     Dates: start: 20120825, end: 20120901
  14. CEFADROXIL. [Concomitant]
     Active Substance: CEFADROXIL
     Indication: SKIN INFECTION
     Dosage: 500 MG, BID (2 TABLETS) FOR 10 DAYS
     Route: 048
     Dates: start: 20121018, end: 20121028
  15. EMTEC [Concomitant]
     Indication: PAIN
     Dosage: 30 MG, PRN (1 CO)
     Route: 048
     Dates: start: 20120915, end: 20120916
  16. HYDROMORPHONE [Concomitant]
     Active Substance: HYDROMORPHONE
     Indication: PAIN
     Dosage: 5 MG, PRN Q 4 HOURS
     Route: 048
     Dates: start: 20141111
  17. SOLIRIS [Suspect]
     Active Substance: ECULIZUMAB
     Dosage: 900 MG, Q12D
     Route: 042
     Dates: start: 20120402
  18. FOLIC ACID. [Concomitant]
     Active Substance: FOLIC ACID
     Indication: PRODUCT USED FOR UNKNOWN INDICATION
     Dosage: 5 MG, QD
     Route: 048
     Dates: start: 20110902
  19. CLOXAPEN [Concomitant]
     Active Substance: CLOXACILLIN SODIUM
     Indication: SUBCUTANEOUS ABSCESS
     Dosage: 50 MG, QID (1 CO)
     Route: 048
     Dates: start: 20120915, end: 20120922
  20. FUCIDINE H [Concomitant]
     Indication: SKIN INFECTION
     Dosage: UNK UNK, QID
     Route: 061
     Dates: start: 20130413
  21. ABREVA [Concomitant]
     Active Substance: DOCOSANOL
     Indication: ORAL HERPES
     Dosage: UNK, PRN
     Route: 061
     Dates: start: 20120411
  22. CEFADROXIL. [Concomitant]
     Active Substance: CEFADROXIL
     Dosage: 500 MG, BID
     Route: 048
     Dates: start: 20130413, end: 20130420
  23. TAMSULOSIN [Concomitant]
     Active Substance: TAMSULOSIN
     Indication: NEPHROLITHIASIS
     Dosage: UNK
     Route: 065
     Dates: start: 20141111

REACTIONS (26)
  - Haemoglobin decreased [Recovered/Resolved]
  - Asthenia [Not Recovered/Not Resolved]
  - Haemoglobin abnormal [Recovering/Resolving]
  - Haemoglobin abnormal [Recovered/Resolved]
  - Abscess [Recovered/Resolved]
  - Headache [Recovered/Resolved]
  - Calculus urinary [Unknown]
  - Haemoglobin abnormal [Unknown]
  - Haemoglobin abnormal [Not Recovered/Not Resolved]
  - Inappropriate schedule of drug administration [Not Recovered/Not Resolved]
  - Blood pressure decreased [Recovered/Resolved]
  - Palpitations [Not Recovered/Not Resolved]
  - Nasopharyngitis [Not Recovered/Not Resolved]
  - Fatigue [Recovered/Resolved]
  - Fatigue [Recovered/Resolved]
  - Chromaturia [Recovering/Resolving]
  - Fatigue [Not Recovered/Not Resolved]
  - Haemoglobin abnormal [Not Recovered/Not Resolved]
  - Haemoglobin decreased [Not Recovered/Not Resolved]
  - Palpitations [Recovered/Resolved]
  - Palpitations [Recovered/Resolved]
  - Dizziness [Recovered/Resolved]
  - Haemoglobin decreased [Unknown]
  - Haemoglobin decreased [Recovered/Resolved]
  - Renal colic [Recovered/Resolved]
  - Abdominal pain upper [Not Recovered/Not Resolved]

NARRATIVE: CASE EVENT DATE: 20120402
